FAERS Safety Report 4277397-9 (Version None)
Quarter: 2004Q1

REPORT INFORMATION
  Report Type: 
  Country: None (occurrence: None)
  Receive Date: 20040120
  Receipt Date: 20040112
  Transmission Date: 20041129
  Serious: Yes (Death, Hospitalization)
  Sender: FDA-Public Use
  Company Number: 200410030BVD

PATIENT
  Age: 65 Year
  Sex: Male
  Weight: 115 kg

DRUGS (33)
  1. CIPROFLOXACIN [Suspect]
     Indication: CHRONIC OBSTRUCTIVE AIRWAYS DISEASE EXACERBATED
     Dosage: ORAL
     Route: 048
     Dates: start: 20010720, end: 20010724
  2. AMITRIPTYLINE HCL [Suspect]
     Indication: DEPRESSION
     Dosage: 45 MG, TOTAL DAILY, ORAL
     Route: 048
  3. LEFAX (DIMETICONE, ACTIVATED) [Suspect]
     Indication: FLATULENCE
     Dosage: ONCE, ORAL
     Route: 048
     Dates: start: 20010721
  4. DIAZEPAM [Suspect]
     Dosage: 5 MG, ONCE, INTRAVENOUS
     Route: 042
     Dates: start: 20010720
  5. LASIX [Suspect]
     Dosage: SEE IMAGE
     Route: 042
     Dates: start: 20010720
  6. LASIX [Suspect]
     Dosage: SEE IMAGE
     Route: 042
     Dates: start: 20010725
  7. ALT-INSULIN [Suspect]
     Dosage: PRN, INTRAVENOUS
     Route: 042
     Dates: start: 20010720
  8. ACETYLCYSTEINE [Suspect]
     Dosage: 600 MG, QD, ORAL
     Route: 048
     Dates: start: 20010720
  9. ATROVENT [Suspect]
     Dosage: RESPIRATORY (INHALATION)
     Route: 055
     Dates: start: 20010720
  10. THEOPHYLLINE [Suspect]
     Dosage: 350 MG, TOTAL DAILY, ORAL
     Route: 048
     Dates: start: 20010720
  11. BRONCHOSPASMIN (REPROTEROL HYDROCHLORIDE) [Suspect]
     Dosage: INTRAVENOUS
     Route: 042
     Dates: start: 20010720
  12. FORADIL [Suspect]
     Dosage: RESPIRATORY (INHALATION)
     Route: 055
     Dates: start: 20010720
  13. SOLU-DECORTIN-H (PREDNISOLONE SODIUM SUCCINATE) [Suspect]
     Dosage: 150 MG, TOTAL DAILY, INTRAVENOUS
     Route: 042
     Dates: start: 20010720
  14. PANTOZOL (PANTOPRAZOLE SODIUM) [Suspect]
     Dosage: 40 MG, QD, ORAL
     Route: 048
     Dates: start: 20010720
  15. ALLOPURINOL [Suspect]
     Dosage: 300 MG, QD, ORAL
     Route: 048
     Dates: start: 20010721
  16. NITROGLYCERIN [Suspect]
     Dosage: 50 MG, TOTAL DAILY, INTRAVENOUS
     Route: 042
     Dates: start: 20010723, end: 20010724
  17. HEPARIN [Suspect]
     Dosage: 2500 IU, TOTAL DAILY, INTRAVENOUS
     Route: 042
     Dates: start: 20010723
  18. NORVASC [Suspect]
     Dosage: 10 MG, QD, ORAL
     Route: 048
     Dates: start: 20010723
  19. VOLMAC (SALBUTAMOL SULFATE) [Suspect]
     Dosage: 8 MG, QD, ORAL
     Route: 048
     Dates: start: 20010721
  20. UNAT (TORASEMIDE) [Suspect]
     Dosage: 10 MG, TOTAL DAILY, ORAL
     Route: 048
     Dates: start: 20010723
  21. LACTULOSE [Suspect]
     Dosage: 20 ML, TOTAL DAILY, ORAL
     Route: 048
     Dates: start: 20010724
  22. AQUAPHOR (XIPAMIDE) [Suspect]
     Dosage: ORAL
     Route: 048
     Dates: start: 20010724
  23. SORTIS (ATORVASTATIN CALCIUM) [Suspect]
     Dosage: 10 MG, TOTAL DAILY, ORAL
     Route: 048
     Dates: start: 20010725
  24. CIBACEN (BENAZEPRIL HYDROCHLORIDE) [Suspect]
     Dosage: 5 MG, TOTAL DAILY, ORAL
     Route: 048
     Dates: start: 20010726
  25. BISACODYL [Suspect]
     Dosage: ONCE, RECTAL
     Route: 054
     Dates: start: 20010727
  26. MUCRET [Concomitant]
  27. UNIPHYLLIN ^NAPP^ [Concomitant]
  28. BAMBEC [Concomitant]
  29. SEREVENT [Concomitant]
  30. JUNIK [Concomitant]
  31. DECORTIN [Concomitant]
  32. ISOPTIN TAB [Concomitant]
  33. VIGANTOLETTEN ^MERCK^ [Concomitant]

REACTIONS (6)
  - CARDIOVASCULAR DISORDER [None]
  - NIKOLSKY'S SIGN [None]
  - RENAL FAILURE [None]
  - RESPIRATORY FAILURE [None]
  - SEPTIC SHOCK [None]
  - TOXIC EPIDERMAL NECROLYSIS [None]
